FAERS Safety Report 15117256 (Version 2)
Quarter: 2018Q3

REPORT INFORMATION
  Report Type: Spontaneous
  Country: US (occurrence: US)
  Receive Date: 20180706
  Receipt Date: 20180830
  Transmission Date: 20181010
  Serious: Yes (Other)
  Sender: FDA-Public Use
  Company Number: US-BAYER-2018-124202

PATIENT
  Age: 53 Year
  Sex: Female
  Weight: 83 kg

DRUGS (5)
  1. METOPROLOL. [Concomitant]
     Active Substance: METOPROLOL
     Dosage: UNK
  2. ENALAPRIL [Concomitant]
     Active Substance: ENALAPRIL
     Dosage: UNK
  3. TRIAMTERENE. [Concomitant]
     Active Substance: TRIAMTERENE
     Dosage: UNK
  4. HYDROCHLOROTHIAZIDE. [Concomitant]
     Active Substance: HYDROCHLOROTHIAZIDE
     Dosage: UNK
  5. BAYER ASPIRIN [Suspect]
     Active Substance: ASPIRIN
     Indication: HYPOAESTHESIA
     Dosage: 1 DF, BID
     Route: 048
     Dates: start: 1990, end: 201802

REACTIONS (6)
  - Off label use [None]
  - Ventricular dysfunction [Recovered/Resolved]
  - Stent placement [Recovered/Resolved]
  - Dizziness [Recovered/Resolved]
  - Product use in unapproved indication [None]
  - Stent placement [Recovered/Resolved]

NARRATIVE: CASE EVENT DATE: 1990
